FAERS Safety Report 9304171 (Version 2)
Quarter: 2013Q2

REPORT INFORMATION
  Report Type: Spontaneous
  Country: AU (occurrence: AU)
  Receive Date: 20130522
  Receipt Date: 20130524
  Transmission Date: 20140414
  Serious: Yes (Death)
  Sender: FDA-Public Use
  Company Number: AU-B.I. PHARMACEUTICALS,INC./RIDGEFIELD-2013-AU-00613AU

PATIENT
  Sex: Female

DRUGS (16)
  1. PRADAXA [Suspect]
     Indication: CEREBROVASCULAR ACCIDENT PROPHYLAXIS
     Dosage: 220 MG
     Dates: start: 20111013
  2. PRADAXA [Suspect]
     Indication: ATRIAL FIBRILLATION
  3. APO-RISPERIDONE [Concomitant]
     Indication: DEPRESSION
     Dosage: 1 MG
     Route: 048
  4. CARVEDILOL [Concomitant]
     Indication: CARDIAC FAILURE
     Dosage: 12.5 MG
     Route: 048
  5. EFEXOR-XR [Concomitant]
     Indication: DEPRESSION
     Dosage: 75 MG
     Route: 048
  6. ENDONE [Concomitant]
     Indication: PAIN
     Dosage: 15 MG
     Route: 048
  7. FERRO-F [Concomitant]
     Dosage: 310MG/350MCG
     Route: 048
  8. LASIX [Concomitant]
     Indication: CARDIAC FAILURE CONGESTIVE
     Dosage: 80 MG
     Route: 048
  9. LEVEMIR FLEXPEN [Concomitant]
     Indication: DIABETES MELLITUS
     Dosage: 100 UNITS/ML
     Route: 058
  10. MICONAZOLE NITRATE [Concomitant]
     Indication: FUNGAL SKIN INFECTION
     Dosage: 2%
     Route: 061
  11. MIRTAZON [Concomitant]
     Dosage: 30 MG
     Route: 048
  12. NEXIUM EC [Concomitant]
     Indication: GASTROOESOPHAGEAL REFLUX DISEASE
     Dosage: 20 MG
     Route: 048
  13. NOVORAPID [Concomitant]
     Indication: DIABETES MELLITUS
     Dosage: 100 UNITS/ML
     Route: 058
  14. OXYCODONE HYDROCHLORIDE [Concomitant]
     Indication: PALLIATIVE CARE
     Dosage: 60 MG
     Route: 048
  15. SEREPAX [Concomitant]
     Indication: PALLIATIVE CARE
     Dosage: 15 MG
     Route: 048
  16. TEMAZE [Concomitant]
     Indication: INSOMNIA
     Dosage: 10 MG
     Route: 048

REACTIONS (5)
  - Renal failure acute [Fatal]
  - Dementia [Fatal]
  - Dehydration [Unknown]
  - Hypophagia [Unknown]
  - Off label use [Unknown]
